FAERS Safety Report 7546245-3 (Version None)
Quarter: 2011Q2

REPORT INFORMATION
  Report Type: 
  Country: None (occurrence: None)
  Receive Date: 20110614
  Receipt Date: 20040524
  Transmission Date: 20111010
  Serious: Yes (Death)
  Sender: FDA-Public Use
  Company Number: PHFR2004GB01235

PATIENT
  Sex: Male

DRUGS (2)
  1. CLOZAPINE [Suspect]
     Dosage: 375 MG/DAY
     Route: 048
     Dates: start: 20000321
  2. CLOZAPINE [Suspect]
     Indication: SCHIZOPHRENIA
     Route: 048
     Dates: start: 19981213

REACTIONS (8)
  - ABDOMINAL PAIN [None]
  - INTESTINAL PERFORATION [None]
  - COAGULOPATHY [None]
  - GASTRIC ULCER [None]
  - HAEMATEMESIS [None]
  - HAEMOPTYSIS [None]
  - ABDOMINAL TENDERNESS [None]
  - GASTRIC VARICES [None]
